FAERS Safety Report 6054278-1 (Version None)
Quarter: 2009Q1

REPORT INFORMATION
  Report Type: 
  Country: None (occurrence: None)
  Receive Date: 20090127
  Receipt Date: 20090112
  Transmission Date: 20090719
  Serious: Yes (Death)
  Sender: FDA-Public Use
  Company Number: GB-AVENTIS-200910503US

PATIENT
  Age: 71 Year
  Sex: Male

DRUGS (8)
  1. GLIBENCLAMIDE [Suspect]
     Dosage: DOSE: UNK
     Route: 048
  2. FUROSEMIDE [Suspect]
     Dosage: DOSE: UNK
     Route: 048
  3. QUININE [Suspect]
     Dosage: DOSE: UNK
     Route: 048
  4. ROSIGLITAZONE [Suspect]
     Dosage: DOSE: UNK
     Route: 048
  5. HYDROCHLOROTHIAZIDE [Suspect]
     Dosage: DOSE: UNK
     Route: 048
  6. BETA BLOCKING AGENTS [Suspect]
     Dosage: DOSE: UNK
     Route: 048
  7. VITAMINS NOS [Suspect]
     Dosage: DOSE: UNK
     Route: 048
  8. IRON [Suspect]
     Dosage: DOSE: UNK
     Route: 048

REACTIONS (2)
  - COMPLETED SUICIDE [None]
  - INTENTIONAL OVERDOSE [None]
